FAERS Safety Report 4620716-1 (Version None)
Quarter: 2005Q1

REPORT INFORMATION
  Report Type: 
  Country: None (occurrence: None)
  Receive Date: 20050325
  Receipt Date: 20050314
  Transmission Date: 20050727
  Serious: Yes (Other)
  Sender: FDA-Public Use
  Company Number: 2005035841

PATIENT
  Age: 73 Year
  Sex: Female
  Weight: 80.7403 kg

DRUGS (5)
  1. CELEBREX [Suspect]
     Indication: ARTHRITIS
     Dosage: 400 MG (200 MG, 2 IN 1 D), ORAL
     Route: 048
     Dates: end: 20050101
  2. CELEBREX [Suspect]
     Indication: TENDONITIS
     Dosage: 400 MG (200 MG, 2 IN 1 D), ORAL
     Route: 048
     Dates: end: 20050101
  3. SIMVASTATIN [Concomitant]
  4. LISINOPRIL [Concomitant]
  5. PIOGLITAZONE HCL [Concomitant]

REACTIONS (2)
  - CATARACT OPERATION [None]
  - DECREASED ACTIVITY [None]
